FAERS Safety Report 8547905-8 (Version None)
Quarter: 2012Q3

REPORT INFORMATION
  Report Type: 
  Country: None (occurrence: None)
  Receive Date: 20120728
  Receipt Date: 20120724
  Transmission Date: 20120928
  Serious: Yes (Other)
  Sender: FDA-Public Use
  Company Number: IE-009507513-1207IRL010187

PATIENT

DRUGS (4)
  1. IMURAN [Concomitant]
  2. ZYPREXA [Concomitant]
  3. MIRTAZAPINE [Suspect]
     Dosage: UNK
  4. EFFEXOR [Concomitant]

REACTIONS (1)
  - BONE MARROW FAILURE [None]
